FAERS Safety Report 23978318 (Version 2)
Quarter: 2024Q3

REPORT INFORMATION
  Report Type: Spontaneous
  Country: US (occurrence: US)
  Receive Date: 20240614
  Receipt Date: 20240823
  Transmission Date: 20241017
  Serious: Yes (Other)
  Sender: RADIUS PHARM
  Company Number: US-RADIUS HEALTH INC.-2024US004034

PATIENT
  Sex: Female

DRUGS (1)
  1. TYMLOS [Suspect]
     Active Substance: ABALOPARATIDE
     Indication: Product used for unknown indication
     Dosage: 80 MICROGRAM, QD
     Route: 058

REACTIONS (9)
  - Lower limb fracture [Unknown]
  - Spinal fracture [Unknown]
  - Fracture [Unknown]
  - Poor peripheral circulation [Unknown]
  - Tooth abscess [Unknown]
  - Sciatica [Unknown]
  - Therapy interrupted [Unknown]
  - Injection site pain [Unknown]
  - Pain [Unknown]
